FAERS Safety Report 8977695 (Version 1)
Quarter: 2012Q4

REPORT INFORMATION
  Report Type: 
  Country: US (occurrence: US)
  Receive Date: 20121220
  Receipt Date: 20121220
  Transmission Date: 20130627
  Serious: No
  Sender: FDA-Public Use
  Company Number: US-TEVA-376899USA

PATIENT
  Sex: Male
  Weight: 108.96 kg

DRUGS (10)
  1. PROAIR HFA [Suspect]
     Indication: LUNG DISORDER
     Dosage: 720 mcg; 2 inhalations QID
     Dates: start: 2012
  2. ISOSORBIDE [Concomitant]
  3. METFORMIN [Concomitant]
  4. QUINAPRIL [Concomitant]
  5. FLOMAX [Concomitant]
  6. OXYBUTYNIN [Concomitant]
  7. ATENOLOL [Concomitant]
  8. RANITIDINE [Concomitant]
  9. GABAPENTIN [Concomitant]
  10. LEVIMIR [Concomitant]
     Indication: DIABETES MELLITUS

REACTIONS (1)
  - Odynophagia [Not Recovered/Not Resolved]
